FAERS Safety Report 6036808-9 (Version None)
Quarter: 2009Q1

REPORT INFORMATION
  Report Type: 
  Country: None (occurrence: None)
  Receive Date: 20090114
  Receipt Date: 20090106
  Transmission Date: 20090719
  Serious: Yes (Hospitalization)
  Sender: FDA-Public Use
  Company Number: PHEH2009US00483

PATIENT
  Sex: Male

DRUGS (9)
  1. EXJADE [Suspect]
     Indication: IRON OVERLOAD
     Dosage: UNK
  2. EXJADE [Suspect]
     Indication: SICKLE CELL ANAEMIA
     Dosage: 1500 MG, QD
  3. EXJADE [Suspect]
     Indication: MOYAMOYA DISEASE
  4. ADVAIR DISKUS 250/50 [Concomitant]
     Indication: ASTHMA
  5. ALBUTEROL [Concomitant]
     Indication: ASTHMA
  6. IBUPROFEN [Concomitant]
  7. TRAZODONE HCL [Concomitant]
  8. SENNA [Concomitant]
  9. COLACE [Concomitant]

REACTIONS (12)
  - ASCITES [None]
  - BLINDNESS UNILATERAL [None]
  - BLOOD ALBUMIN DECREASED [None]
  - CEREBRAL INFARCTION [None]
  - DISEASE PROGRESSION [None]
  - EYE PAIN [None]
  - NEPHROTIC SYNDROME [None]
  - OEDEMA PERIPHERAL [None]
  - PERIORBITAL OEDEMA [None]
  - PROTEINURIA [None]
  - RETINAL DISORDER [None]
  - VISUAL ACUITY REDUCED [None]
